FAERS Safety Report 24431251 (Version 1)
Quarter: 2024Q4

REPORT INFORMATION
  Report Type: Spontaneous
  Country: US (occurrence: US)
  Receive Date: 20241014
  Receipt Date: 20241014
  Transmission Date: 20250115
  Serious: Yes (Death)
  Sender: ROCHE
  Company Number: US-ROCHE-10000105034

PATIENT
  Sex: Male

DRUGS (12)
  1. ERIVEDGE [Suspect]
     Active Substance: VISMODEGIB
     Indication: Basal cell carcinoma
     Route: 048
  2. TYLENOL EXTERNAL TABLET [Concomitant]
  3. ACETAMINOPHEN [Concomitant]
     Active Substance: ACETAMINOPHEN
  4. ALBUTEROL [Concomitant]
     Active Substance: ALBUTEROL
  5. ATORVASTATIN [Concomitant]
     Active Substance: ATORVASTATIN
  6. DILTIAZEM HC [Concomitant]
  7. ESCITALOPRAM [Concomitant]
     Active Substance: ESCITALOPRAM OXALATE
  8. EZETIMIBE [Concomitant]
     Active Substance: EZETIMIBE
  9. STIOLTO RESP [Concomitant]
  10. TERAZOSIN HC CAP [Concomitant]
  11. VITAMIN B12 TAB [Concomitant]
  12. XARELTO TAB [Concomitant]

REACTIONS (1)
  - Death [Fatal]
